FAERS Safety Report 4389982-4 (Version None)
Quarter: 2004Q2

REPORT INFORMATION
  Report Type: 
  Country: None (occurrence: None)
  Receive Date: 20040630
  Receipt Date: 20040617
  Transmission Date: 20050107
  Serious: Yes (Hospitalization, Other)
  Sender: FDA-Public Use
  Company Number: 2004040443

PATIENT
  Age: 55 Year
  Sex: Male

DRUGS (7)
  1. LIPITOR [Suspect]
     Indication: ILL-DEFINED DISORDER
     Dosage: 10 MG (10 MG, 1 IN 1 D), ORAL
     Route: 048
     Dates: end: 20040616
  2. ACETYLSALICYLIC ACID SRT [Concomitant]
  3. CLOPIDOGREL BISULFATE [Concomitant]
  4. ISOSORBIDE MONONITRATE [Concomitant]
  5. ALL OTHER THERAPEUTIC PRODUCTS (ALL OTHER THERAPEUTIC PRODUCTS) [Concomitant]
  6. CAPTOPRIL [Concomitant]
  7. CEFUROXIME [Concomitant]

REACTIONS (3)
  - BLOOD CREATINE PHOSPHOKINASE INCREASED [None]
  - MYALGIA [None]
  - MYOCARDIAL INFARCTION [None]
